FAERS Safety Report 17766109 (Version 1)
Quarter: 2020Q2

REPORT INFORMATION
  Report Type: Spontaneous
  Country: FR (occurrence: FR)
  Receive Date: 20200511
  Receipt Date: 20200511
  Transmission Date: 20200714
  Serious: Yes (Life-Threatening, Hospitalization, Other)
  Sender: FDA-Public Use
  Company Number: FR-JNJFOC-20191020099

PATIENT
  Age: 68 Year
  Sex: Female
  Weight: 75 kg

DRUGS (6)
  1. PROPRANOLOL [Suspect]
     Active Substance: PROPRANOLOL HYDROCHLORIDE
     Indication: PRODUCT USED FOR UNKNOWN INDICATION
     Dosage: 50 DF, ONCE
     Route: 048
     Dates: start: 20190217, end: 20190217
  2. TRAMADOL HYDROCHLORIDE. [Suspect]
     Active Substance: TRAMADOL HYDROCHLORIDE
     Indication: PRODUCT USED FOR UNKNOWN INDICATION
     Dosage: 1.5 G, ONCE
     Route: 048
     Dates: start: 20190217, end: 20190217
  3. EXFORGE [Suspect]
     Active Substance: AMLODIPINE BESYLATE\VALSARTAN
     Indication: PRODUCT USED FOR UNKNOWN INDICATION
     Dosage: 90 DF, ONCE
     Route: 048
     Dates: start: 20190217, end: 20190217
  4. DOLIPRANE [Suspect]
     Active Substance: ACETAMINOPHEN
     Indication: PRODUCT USED FOR UNKNOWN INDICATION
     Dosage: 4 G, ONCE
     Route: 048
     Dates: start: 20190217, end: 20190217
  5. BISOPROLOL [Suspect]
     Active Substance: BISOPROLOL
     Indication: PRODUCT USED FOR UNKNOWN INDICATION
     Dosage: UNK
     Route: 048
  6. CODOLIPRANE [Suspect]
     Active Substance: ACETAMINOPHEN\CODEINE PHOSPHATE
     Indication: PRODUCT USED FOR UNKNOWN INDICATION
     Dosage: 26 DF, ONCE
     Route: 048
     Dates: start: 20190217, end: 20190217

REACTIONS (7)
  - Liver injury [Recovered/Resolved]
  - Intentional overdose [Unknown]
  - Coma [Recovered/Resolved]
  - Vasoplegia syndrome [Recovered/Resolved]
  - Poisoning deliberate [Unknown]
  - Cardiogenic shock [Recovered/Resolved]
  - Overdose [Unknown]

NARRATIVE: CASE EVENT DATE: 20190217
